FAERS Safety Report 5210554-3 (Version None)
Quarter: 2006Q4

REPORT INFORMATION
  Report Type: 
  Country: None (occurrence: None)
  Receive Date: 20061106
  Receipt Date: 20060714
  Transmission Date: 20070319
  Serious: Yes (Other)
  Sender: FDA-Public Use
  Company Number: US-JNJFOC-20060705710

PATIENT
  Age: 85 Year
  Sex: Female
  Weight: 58.9676 kg

DRUGS (2)
  1. IBUPROFEN [Suspect]
     Indication: PAIN
     Dates: end: 20060101
  2. CELEBREX [Concomitant]

REACTIONS (2)
  - DYSPHAGIA [None]
  - GASTRIC ULCER [None]
